FAERS Safety Report 10962364 (Version 1)
Quarter: 2015Q1

REPORT INFORMATION
  Report Type: Spontaneous
  Country: US (occurrence: None)
  Receive Date: 20150226
  Receipt Date: 20150226
  Transmission Date: 20150721
  Serious: Yes (Hospitalization)
  Sender: FDA-Public Use
  Company Number: TPA2009A01036

PATIENT
  Age: 85 Year
  Sex: Male

DRUGS (3)
  1. ACTOS [Suspect]
     Active Substance: PIOGLITAZONE HYDROCHLORIDE
     Indication: TYPE 2 DIABETES MELLITUS
     Dates: start: 200905, end: 200905
  2. UNSPECIFIED SULFONYLUREA (ALL OTHER THERAPEUTIC PRODUCTS) [Concomitant]
  3. INSULIN [Concomitant]
     Active Substance: INSULIN NOS

REACTIONS (1)
  - Cardiac failure congestive [None]

NARRATIVE: CASE EVENT DATE: 200905
